FAERS Safety Report 12631340 (Version 2)
Quarter: 2016Q3

REPORT INFORMATION
  Report Type: Spontaneous
  Country: US (occurrence: US)
  Receive Date: 20160808
  Receipt Date: 20160808
  Transmission Date: 20161109
  Serious: No
  Sender: FDA-Public Use
  Company Number: US-BEH-2015053424

PATIENT
  Sex: Male
  Weight: 63 kg

DRUGS (44)
  1. HYDROXYCHLOROQUINE [Concomitant]
     Active Substance: HYDROXYCHLOROQUINE
  2. QVAR [Concomitant]
     Active Substance: BECLOMETHASONE DIPROPIONATE
  3. DIPHENHYDRAMINE. [Concomitant]
     Active Substance: DIPHENHYDRAMINE
     Indication: ANAPHYLACTIC REACTION
  4. XOLAIR [Concomitant]
     Active Substance: OMALIZUMAB
  5. AMITRIPTYLINE [Concomitant]
     Active Substance: AMITRIPTYLINE
  6. FLOMAX [Concomitant]
     Active Substance: TAMSULOSIN HYDROCHLORIDE
  7. CALCIUM [Concomitant]
     Active Substance: CALCIUM
  8. PROSCAR [Concomitant]
     Active Substance: FINASTERIDE
  9. LYRICA [Concomitant]
     Active Substance: PREGABALIN
  10. CETIRIZINE [Concomitant]
     Active Substance: CETIRIZINE HYDROCHLORIDE
  11. MUCINEX [Concomitant]
     Active Substance: GUAIFENESIN
  12. METFORMIN [Concomitant]
     Active Substance: METFORMIN HYDROCHLORIDE
  13. ADVAIR HFA [Concomitant]
     Active Substance: FLUTICASONE PROPIONATE\SALMETEROL XINAFOATE
  14. XALATAN [Concomitant]
     Active Substance: LATANOPROST
  15. HYDROXYZINE [Concomitant]
     Active Substance: HYDROXYZINE\HYDROXYZINE HYDROCHLORIDE
  16. ALBUTEROL. [Concomitant]
     Active Substance: ALBUTEROL
  17. TIMOLOL. [Concomitant]
     Active Substance: TIMOLOL
  18. NITROLINGUAL [Concomitant]
     Active Substance: NITROGLYCERIN
  19. NEXIUM [Concomitant]
     Active Substance: ESOMEPRAZOLE MAGNESIUM
  20. IMURAN [Concomitant]
     Active Substance: AZATHIOPRINE
  21. MIRALAX [Concomitant]
     Active Substance: POLYETHYLENE GLYCOL 3350
  22. ERYTHROMYCIN. [Concomitant]
     Active Substance: ERYTHROMYCIN
  23. TRIAMCINOLONE [Concomitant]
     Active Substance: TRIAMCINOLONE
  24. PREDNISONE. [Concomitant]
     Active Substance: PREDNISONE
  25. VENTOLIN [Concomitant]
     Active Substance: ALBUTEROL SULFATE
  26. GENTAMYCIN [Concomitant]
     Active Substance: GENTAMICIN
  27. SPIRIVA [Concomitant]
     Active Substance: TIOTROPIUM BROMIDE MONOHYDRATE
  28. PLAVIX [Concomitant]
     Active Substance: CLOPIDOGREL BISULFATE
  29. SYNTHROID [Concomitant]
     Active Substance: LEVOTHYROXINE SODIUM
  30. ACAPELLA [Concomitant]
  31. HIZENTRA [Suspect]
     Active Substance: HUMAN IMMUNOGLOBULIN G
     Indication: IMMUNODEFICIENCY COMMON VARIABLE
     Dosage: 10 GM 50 ML VIAL
     Route: 058
  32. FERROUS GLUCONATE [Concomitant]
     Active Substance: FERROUS GLUCONATE
  33. SINGULAIR [Concomitant]
     Active Substance: MONTELUKAST SODIUM
  34. TYLENOL [Concomitant]
     Active Substance: ACETAMINOPHEN
  35. NASONEX [Concomitant]
     Active Substance: MOMETASONE FUROATE
  36. VITAMIN [Concomitant]
     Active Substance: VITAMINS
  37. LIDOCAINE/PRILOCAINE [Concomitant]
     Active Substance: LIDOCAINE\PRILOCAINE
  38. EPIPEN [Concomitant]
     Active Substance: EPINEPHRINE
     Indication: ANAPHYLACTIC REACTION
  39. COLLAGENASE SANTYL [Concomitant]
     Active Substance: COLLAGENASE CLOSTRIDIUM HISTOLYTICUM
  40. CENTRUM SILVER [Concomitant]
     Active Substance: MINERALS\VITAMINS
  41. AMMONIUM [Concomitant]
  42. SODIUM CHLORIDE. [Concomitant]
     Active Substance: SODIUM CHLORIDE
  43. SIMVASTATIN. [Concomitant]
     Active Substance: SIMVASTATIN
  44. FOLIC ACID. [Concomitant]
     Active Substance: FOLIC ACID

REACTIONS (1)
  - Infusion site mass [Unknown]
